FAERS Safety Report 6425188-2 (Version None)
Quarter: 2009Q4

REPORT INFORMATION
  Report Type: 
  Country: None (occurrence: None)
  Receive Date: 20091103
  Receipt Date: 20091022
  Transmission Date: 20100525
  Serious: Yes (Hospitalization)
  Sender: FDA-Public Use
  Company Number: SI-BAYER-200936524GPV

PATIENT
  Age: 34 Year
  Sex: Female

DRUGS (1)
  1. PRIMOVIST [Suspect]
     Indication: ADRENAL DISORDER
     Dosage: TOTAL DAILY DOSE: 10 ML  UNIT DOSE: 10 ML
     Route: 042
     Dates: start: 20091009, end: 20091009

REACTIONS (4)
  - DYSPNOEA [None]
  - MUSCULOSKELETAL DISCOMFORT [None]
  - NAUSEA [None]
  - VOMITING [None]
